FAERS Safety Report 8174463-2 (Version None)
Quarter: 2012Q1

REPORT INFORMATION
  Report Type: 
  Country: None (occurrence: None)
  Receive Date: 20120229
  Receipt Date: 20120222
  Transmission Date: 20120608
  Serious: Yes (Other)
  Sender: FDA-Public Use
  Company Number: US-ASTRAZENECA-2012SE12459

PATIENT
  Age: 61 Year
  Sex: Female
  Weight: 57.2 kg

DRUGS (4)
  1. SEROQUEL [Suspect]
     Indication: POST-TRAUMATIC STRESS DISORDER
     Dosage: 200 MG IN THE MORNING AND 400 AT NIGHT
     Route: 048
     Dates: start: 20060101, end: 20090101
  2. SEROQUEL [Suspect]
     Indication: DEPRESSION
     Dosage: 200 MG IN THE MORNING AND 400 AT NIGHT
     Route: 048
     Dates: start: 20060101, end: 20090101
  3. TRAZODONE HCL [Concomitant]
  4. XANAX [Concomitant]

REACTIONS (16)
  - FUNCTIONAL GASTROINTESTINAL DISORDER [None]
  - APPARENT DEATH [None]
  - OFF LABEL USE [None]
  - TOXICITY TO VARIOUS AGENTS [None]
  - RENAL DISORDER [None]
  - FALL [None]
  - UPPER LIMB FRACTURE [None]
  - ORGAN FAILURE [None]
  - MUSCLE ATROPHY [None]
  - LIVER INJURY [None]
  - LOSS OF CONSCIOUSNESS [None]
  - BLOOD GLUCOSE INCREASED [None]
  - BALANCE DISORDER [None]
  - MEMORY IMPAIRMENT [None]
  - WEIGHT INCREASED [None]
  - PANCREATIC ATROPHY [None]
